FAERS Safety Report 8297028-0 (Version None)
Quarter: 2012Q2

REPORT INFORMATION
  Report Type: 
  Country: None (occurrence: None)
  Receive Date: 20120413
  Receipt Date: 20120404
  Transmission Date: 20120825
  Serious: Yes (Hospitalization)
  Sender: FDA-Public Use
  Company Number: IMP_05835-2012

PATIENT
  Age: 58 Year
  Sex: Female

DRUGS (1)
  1. DOXYCYCLINE [Suspect]
     Indication: ROSACEA
     Dosage: (100 MG/DAY

REACTIONS (3)
  - ALVEOLITIS [None]
  - HYPOXIA [None]
  - PNEUMONITIS [None]
